FAERS Safety Report 10238225 (Version 1)
Quarter: 2014Q2

REPORT INFORMATION
  Report Type: Spontaneous
  Country: US (occurrence: US)
  Receive Date: 20140616
  Receipt Date: 20140616
  Transmission Date: 20141212
  Serious: Yes (Hospitalization)
  Sender: FDA-Public Use
  Company Number: US-JNJFOC-20140605806

PATIENT
  Age: 74 Year
  Sex: Male
  Weight: 126 kg

DRUGS (8)
  1. XARELTO [Suspect]
     Indication: CEREBROVASCULAR ACCIDENT PROPHYLAXIS
     Route: 048
     Dates: end: 20140606
  2. XARELTO [Suspect]
     Indication: ATRIAL FIBRILLATION
     Route: 048
     Dates: end: 20140606
  3. CARDIZEM [Concomitant]
     Route: 065
  4. ASCORBIC ACID [Concomitant]
     Route: 065
  5. SOTALOL [Concomitant]
     Indication: ATRIAL FIBRILLATION
     Dosage: AS NEEDED
     Route: 065
  6. PROTONIX [Concomitant]
     Route: 065
  7. ENALAPRIL [Concomitant]
     Route: 065
  8. LIPITOR [Concomitant]
     Indication: BLOOD CHOLESTEROL
     Route: 065

REACTIONS (2)
  - High frequency ablation [Unknown]
  - Troponin [Not Recovered/Not Resolved]
